FAERS Safety Report 5761810-1 (Version None)
Quarter: 2008Q2

REPORT INFORMATION
  Report Type: 
  Country: None (occurrence: None)
  Receive Date: 20080602
  Receipt Date: 20080523
  Transmission Date: 20081010
  Serious: Yes (Death)
  Sender: FDA-Public Use
  Company Number: 163-21880-08020026

PATIENT
  Age: 71 Year
  Sex: Female

DRUGS (3)
  1. REVLIMID [Suspect]
     Indication: LYMPHOMA
     Dosage: 10 MG, Q DAILY X 21 DAYS, ORAL
     Route: 048
     Dates: start: 20080119, end: 20080123
  2. ARANESP [Concomitant]
  3. DECADRON [Concomitant]

REACTIONS (11)
  - APNOEA [None]
  - BLOOD CALCIUM INCREASED [None]
  - HYDRONEPHROSIS [None]
  - MENTAL IMPAIRMENT [None]
  - PAIN [None]
  - REFUSAL OF TREATMENT BY PATIENT [None]
  - RENAL FAILURE [None]
  - RESPIRATORY ARREST [None]
  - SPLENOMEGALY [None]
  - TUMOUR LYSIS SYNDROME [None]
  - UROSEPSIS [None]
